FAERS Safety Report 9036424 (Version 1)
Quarter: 2013Q1

REPORT INFORMATION
  Report Type: Spontaneous
  Country: US (occurrence: None)
  Receive Date: 20130122
  Receipt Date: 20130122
  Transmission Date: 20140127
  Serious: No
  Sender: FDA-Public Use
  Company Number: None

PATIENT
  Age: 13 Year
  Sex: Female
  Weight: 56.25 kg

DRUGS (1)
  1. NORTREL [Suspect]
     Indication: MENORRHAGIA
     Dosage: ONE EVERYDAY
     Dates: start: 20120720, end: 20121130

REACTIONS (11)
  - Fluid retention [None]
  - Pleural effusion [None]
  - Chest pain [None]
  - Pain in extremity [None]
  - Hypoaesthesia [None]
  - Pericardial effusion [None]
  - Headache [None]
  - Drug ineffective [None]
  - Acne [None]
  - Swelling [None]
  - Weight increased [None]
